FAERS Safety Report 6262623-7 (Version None)
Quarter: 2009Q3

REPORT INFORMATION
  Report Type: 
  Country: None (occurrence: None)
  Receive Date: 20090709
  Receipt Date: 20090629
  Transmission Date: 20100115
  Serious: Yes (Other)
  Sender: FDA-Public Use
  Company Number: GB-AVENTIS-200916585GDDC

PATIENT

DRUGS (1)
  1. GLIBENCLAMIDE [Suspect]
     Route: 048

REACTIONS (2)
  - BLOOD TEST ABNORMAL [None]
  - SCAN MYOCARDIAL PERFUSION ABNORMAL [None]
